FAERS Safety Report 22151416 (Version 4)
Quarter: 2023Q2

REPORT INFORMATION
  Report Type: Spontaneous
  Country: BE (occurrence: BE)
  Receive Date: 20230329
  Receipt Date: 20230522
  Transmission Date: 20230722
  Serious: Yes (Disabling)
  Sender: FDA-Public Use
  Company Number: BE-BEH-2023156471

PATIENT
  Age: 64 Year
  Sex: Male
  Weight: 75 kg

DRUGS (9)
  1. HIZENTRA [Suspect]
     Active Substance: HUMAN IMMUNOGLOBULIN G
     Indication: Chronic inflammatory demyelinating polyradiculoneuropathy
     Dosage: 15 GRAM, QW
     Route: 058
     Dates: start: 20230202
  2. HIZENTRA [Suspect]
     Active Substance: HUMAN IMMUNOGLOBULIN G
     Dosage: UNK
     Route: 065
     Dates: start: 20230223
  3. HIZENTRA [Suspect]
     Active Substance: HUMAN IMMUNOGLOBULIN G
     Dosage: UNK
     Route: 065
     Dates: start: 20230302
  4. HIZENTRA [Suspect]
     Active Substance: HUMAN IMMUNOGLOBULIN G
     Dosage: 15 GRAM, QW
     Route: 065
     Dates: start: 20230209
  5. HIZENTRA [Suspect]
     Active Substance: HUMAN IMMUNOGLOBULIN G
     Dosage: 15 GRAM, QW
     Route: 065
     Dates: start: 20230216
  6. PRIVIGEN [Suspect]
     Active Substance: HUMAN IMMUNOGLOBULIN G
     Dosage: UNK
     Route: 065
     Dates: start: 2014, end: 20201228
  7. PRIVIGEN [Suspect]
     Active Substance: HUMAN IMMUNOGLOBULIN G
     Dosage: UNK
     Route: 065
     Dates: start: 202011
  8. PRIVIGEN [Suspect]
     Active Substance: HUMAN IMMUNOGLOBULIN G
     Dosage: HALF-DOSE
     Route: 065
     Dates: start: 202012
  9. METHYLPREDNISOLONE ACETATE [Concomitant]
     Active Substance: METHYLPREDNISOLONE ACETATE
     Indication: Arthralgia
     Dosage: 4 MILLIGRAM, QD
     Route: 048
     Dates: start: 2017

REACTIONS (27)
  - Injection site erythema [Unknown]
  - Musculoskeletal stiffness [Unknown]
  - Gait inability [Recovered/Resolved]
  - Injection site erythema [Unknown]
  - Joint stiffness [Unknown]
  - Arthralgia [Not Recovered/Not Resolved]
  - Swelling face [Unknown]
  - Erythema [Unknown]
  - Pruritus [Unknown]
  - Pyrexia [Unknown]
  - Injection site induration [Unknown]
  - Skin exfoliation [Unknown]
  - Drug hypersensitivity [Unknown]
  - Rash [Unknown]
  - Erythema [Unknown]
  - Skin exfoliation [Unknown]
  - Arthralgia [Unknown]
  - Joint swelling [Unknown]
  - Drug hypersensitivity [Recovered/Resolved with Sequelae]
  - Flushing [Recovered/Resolved with Sequelae]
  - Pruritus [Recovered/Resolved with Sequelae]
  - Pruritus [Recovered/Resolved with Sequelae]
  - Rash [Recovered/Resolved with Sequelae]
  - Chills [Recovered/Resolved with Sequelae]
  - Chills [Recovered/Resolved with Sequelae]
  - Dizziness [Recovered/Resolved with Sequelae]
  - Vertigo [Recovered/Resolved with Sequelae]

NARRATIVE: CASE EVENT DATE: 20230223
